FAERS Safety Report 13766368 (Version 1)
Quarter: 2017Q3

REPORT INFORMATION
  Report Type: Spontaneous
  Country: US (occurrence: US)
  Receive Date: 20170719
  Receipt Date: 20170719
  Transmission Date: 20171127
  Serious: Yes (Other)
  Sender: FDA-Public Use
  Company Number: US-TEVA-788784ACC

PATIENT
  Age: 30 Year
  Sex: Female
  Weight: 61.29 kg

DRUGS (4)
  1. PARAGARD T 380A [Suspect]
     Active Substance: COPPER
     Indication: CONTRACEPTION
     Dates: start: 20170613, end: 20170713
  2. LAMICTAL [Concomitant]
     Active Substance: LAMOTRIGINE
  3. DIGOXIN. [Concomitant]
     Active Substance: DIGOXIN
  4. SOTALOL. [Concomitant]
     Active Substance: SOTALOL

REACTIONS (2)
  - Embedded device [Recovered/Resolved]
  - Device dislocation [Recovered/Resolved]

NARRATIVE: CASE EVENT DATE: 20170713
